FAERS Safety Report 7068205-1 (Version None)
Quarter: 2010Q4

REPORT INFORMATION
  Report Type: 
  Country: None (occurrence: None)
  Receive Date: 20101028
  Receipt Date: 20100312
  Transmission Date: 20110411
  Serious: No
  Sender: FDA-Public Use
  Company Number: US-MYLANLABS-2010S1004304

PATIENT
  Sex: Female

DRUGS (5)
  1. DIAZEPAM [Suspect]
     Indication: INSOMNIA
     Route: 048
     Dates: start: 20090627, end: 20090101
  2. DIAZEPAM [Suspect]
     Dosage: 2.5MG - 10MG
     Route: 048
     Dates: start: 20090101, end: 20090101
  3. DIAZEPAM [Suspect]
     Dosage: 2.5MG - 10MG
     Route: 048
     Dates: start: 20090101, end: 20090101
  4. DIAZEPAM [Suspect]
     Dosage: 2.5MG - 10MG
     Route: 048
     Dates: end: 20090701
  5. DIAZEPAM [Suspect]
     Route: 048
     Dates: start: 20090701

REACTIONS (7)
  - DRUG EFFECT INCREASED [None]
  - DRUG INEFFECTIVE [None]
  - DYSPNOEA [None]
  - MUSCLE SPASMS [None]
  - MUSCULAR WEAKNESS [None]
  - PROTRUSION TONGUE [None]
  - TONGUE SPASM [None]
